FAERS Safety Report 17774848 (Version 1)
Quarter: 2020Q2

REPORT INFORMATION
  Report Type: Spontaneous
  Country: US (occurrence: US)
  Receive Date: 20200512
  Receipt Date: 20200512
  Transmission Date: 20200714
  Serious: Yes (Hospitalization)
  Sender: FDA-Public Use
  Company Number: None

PATIENT
  Age: 69 Year
  Sex: Female
  Weight: 79.4 kg

DRUGS (22)
  1. FENTANYL. [Concomitant]
     Active Substance: FENTANYL
     Dates: start: 20200510
  2. BISACODYL SUPPOSITORY [Concomitant]
     Active Substance: BISACODYL
     Dates: start: 20200508
  3. HYDROXYCHLOROQUINE OR PLACEBO [Concomitant]
     Dates: start: 20200507
  4. REMDESIVIR. [Suspect]
     Active Substance: REMDESIVIR
     Indication: COVID-19
     Route: 041
     Dates: start: 20200507, end: 20200511
  5. SUCCINYLCHOLINE [Concomitant]
     Active Substance: SUCCINYLCHOLINE
     Dates: start: 20200510, end: 20200510
  6. NOREPINEPHRINE. [Concomitant]
     Active Substance: NOREPINEPHRINE
     Dates: start: 20200510
  7. FAMOTIDINE. [Concomitant]
     Active Substance: FAMOTIDINE
     Dates: start: 20200510
  8. METOLAZONE 10 MG [Concomitant]
     Dates: start: 20200509, end: 20200509
  9. NALOXONE [Concomitant]
     Active Substance: NALOXONE
     Dates: start: 20200510
  10. VANCOMYCIN [Concomitant]
     Active Substance: VANCOMYCIN
     Dates: start: 20200510
  11. POTASSIUM CHLORIDE. [Concomitant]
     Active Substance: POTASSIUM CHLORIDE
     Dates: start: 20200510
  12. PIPERACILLIN/TAZOBACTAM [Concomitant]
     Active Substance: PIPERACILLIN SODIUM\TAZOBACTAM SODIUM
     Dates: start: 20200510
  13. INSULIN LISPRO [Concomitant]
     Active Substance: INSULIN LISPRO
     Dates: start: 20200510
  14. PROPOFOL. [Concomitant]
     Active Substance: PROPOFOL
     Dates: start: 20200510
  15. ENOXAPARIN [Concomitant]
     Active Substance: ENOXAPARIN
     Dates: start: 20200505, end: 20200511
  16. ETOMIDATE. [Concomitant]
     Active Substance: ETOMIDATE
     Dates: start: 20200510, end: 20200510
  17. INHALED EPOPROSTENOL [Concomitant]
     Dates: start: 20200510
  18. ASPIRIN CHEWABLE [Concomitant]
     Active Substance: ASPIRIN
     Dates: start: 20200506
  19. GABAPENTIN. [Concomitant]
     Active Substance: GABAPENTIN
     Dates: start: 20200509
  20. SENNA [Concomitant]
     Active Substance: SENNA LEAF\SENNOSIDES\SENNOSIDES A AND B
     Dates: start: 20200507
  21. IV FUROSEMIDE 40 MG X 1 [Concomitant]
     Dates: start: 20200510, end: 20200510
  22. HEPARIN [Concomitant]
     Active Substance: HEPARIN SODIUM
     Dates: start: 20200512

REACTIONS (3)
  - Oliguria [None]
  - Acute kidney injury [None]
  - Blood creatinine increased [None]

NARRATIVE: CASE EVENT DATE: 20200511
